FAERS Safety Report 10371911 (Version 2)
Quarter: 2015Q2

REPORT INFORMATION
  Report Type: Report from Study
  Country: US (occurrence: US)
  Receive Date: 20140808
  Receipt Date: 20150521
  Transmission Date: 20150821
  Serious: Yes (Death, Other)
  Sender: FDA-Public Use
  Company Number: US-ASTELLAS-2014US009788

PATIENT
  Age: 70 Year
  Sex: Female

DRUGS (2)
  1. ERLOTINIB [Suspect]
     Active Substance: ERLOTINIB
     Indication: PANCREATIC CARCINOMA
     Route: 048
  2. ERLOTINIB [Suspect]
     Active Substance: ERLOTINIB
     Indication: NEOPLASM MALIGNANT

REACTIONS (4)
  - Metastases to spine [Unknown]
  - Product use issue [Unknown]
  - Metastases to bone [Unknown]
  - Death [Fatal]

NARRATIVE: CASE EVENT DATE: 20051212
